FAERS Safety Report 7565772-6 (Version None)
Quarter: 2011Q2

REPORT INFORMATION
  Report Type: 
  Country: None (occurrence: None)
  Receive Date: 20110623
  Receipt Date: 20110616
  Transmission Date: 20111010
  Serious: No
  Sender: FDA-Public Use
  Company Number: US-PFIZER INC-2011133306

PATIENT
  Sex: Female
  Weight: 111 kg

DRUGS (16)
  1. GENOTROPIN [Suspect]
     Indication: GROWTH HORMONE DEFICIENCY
     Dosage: 0.02 MG, 1X/DAY
     Dates: start: 20100101, end: 20110101
  2. IBUPROFEN [Concomitant]
     Dosage: 7.5 MG, 3X/DAY
  3. CALCIUM [Concomitant]
     Dosage: UNK
  4. ALLEGRA [Concomitant]
     Dosage: UNK
  5. CITALOPRAM [Concomitant]
     Dosage: 40 MG, UNK
  6. LORAZEPAM [Concomitant]
     Dosage: 1 MG, UNK
  7. HYDROCHLOROTHIAZIDE [Concomitant]
     Dosage: 25 MG, UNK
  8. NEXIUM [Concomitant]
     Dosage: 40 MG, 2X/DAY
  9. ASPIRIN [Concomitant]
     Dosage: 325 MG, 1X/DAY
  10. ALPRAZOLAM [Concomitant]
     Dosage: 1 MG, UNK
  11. NASONEX [Concomitant]
     Dosage: 50 MG, UNK
  12. MONTELUKAST [Concomitant]
     Dosage: 10 MG, UNK
  13. GENOTROPIN [Suspect]
     Dosage: 0.02 MG, 1X/DAY
     Dates: start: 20110101, end: 20110615
  14. EVOXAC [Concomitant]
     Dosage: UNK, AS NEEDED
  15. MULTI-VITAMINS [Concomitant]
     Dosage: UNK
  16. ADVAIR DISKUS 100/50 [Concomitant]
     Dosage: UNK

REACTIONS (3)
  - NAUSEA [None]
  - CHILLS [None]
  - DISCOMFORT [None]
